FAERS Safety Report 19185574 (Version 1)
Quarter: 2021Q2

REPORT INFORMATION
  Report Type: Spontaneous
  Country: US (occurrence: US)
  Receive Date: 20210427
  Receipt Date: 20210427
  Transmission Date: 20210717
  Serious: Yes (Hospitalization, Other)
  Sender: FDA-Public Use
  Company Number: US-ELI_LILLY_AND_COMPANY-US202104008205

PATIENT
  Sex: Female

DRUGS (1)
  1. HUMALOG [Suspect]
     Active Substance: INSULIN LISPRO
     Indication: PRODUCT USED FOR UNKNOWN INDICATION
     Dosage: 20?30 U, UNKNOWN
     Route: 065

REACTIONS (6)
  - Blood glucose decreased [Unknown]
  - Loss of consciousness [Unknown]
  - Glycosylated haemoglobin increased [Unknown]
  - Pneumonia [Unknown]
  - Diabetes mellitus inadequate control [Unknown]
  - Blood glucose increased [Unknown]

NARRATIVE: CASE EVENT DATE: 20200116
